FAERS Safety Report 23541556 (Version 1)
Quarter: 2024Q1

REPORT INFORMATION
  Report Type: Report from Study
  Country: FR (occurrence: FR)
  Receive Date: 20240219
  Receipt Date: 20240219
  Transmission Date: 20240409
  Serious: Yes (Death, Hospitalization, Other)
  Sender: FDA-Public Use
  Company Number: FR-CELGENE-FRA-20171204401

PATIENT
  Age: 70 Year
  Sex: Male
  Weight: 77.5 kg

DRUGS (13)
  1. AZACITIDINE [Suspect]
     Active Substance: AZACITIDINE
     Indication: Myelodysplastic syndrome
     Dosage: 75 MILLIGRAM/SQ. METER?DURATION TEXT : CYCLE 1
     Route: 058
     Dates: start: 20170529, end: 20170602
  2. AZACITIDINE [Suspect]
     Active Substance: AZACITIDINE
     Dosage: 75 MILLIGRAM/SQ. METER
     Route: 058
     Dates: start: 20170626
  3. ODOMZO [Suspect]
     Active Substance: SONIDEGIB
     Indication: Myelodysplastic syndrome
     Dosage: 400 MILLIGRAM?DURATION TEXT : CYCLE 1
     Route: 048
     Dates: start: 20170529, end: 20170702
  4. ODOMZO [Suspect]
     Active Substance: SONIDEGIB
     Dosage: 400 MILLIGRAM
     Route: 048
     Dates: start: 20170724, end: 20170729
  5. LACTULOSE [Concomitant]
     Active Substance: LACTULOSE
     Indication: Constipation
     Dosage: FREQUENCY TEXT: NOT PROVIDED?1 POUCH
     Route: 048
  6. LANTUS [Concomitant]
     Active Substance: INSULIN GLARGINE
     Indication: Dissociative identity disorder
     Dosage: 56 IU (INTERNATIONAL UNIT)
     Route: 058
  7. HYDROXYZINE [Concomitant]
     Active Substance: HYDROXYZINE HYDROCHLORIDE
     Indication: Anxiety
     Dosage: FREQUENCY TEXT: NOT PROVIDED
     Route: 048
  8. EXJADE [Concomitant]
     Active Substance: DEFERASIROX
     Indication: Chelation therapy
     Dosage: 1500 MILLIGRAM, QD
     Route: 048
  9. NOVORAPID [Concomitant]
     Active Substance: INSULIN ASPART
     Indication: Dissociative identity disorder
     Dosage: 30 IU, UNK
     Route: 058
  10. VALACYCLOVIR HYDROCHLORIDE [Concomitant]
     Active Substance: VALACYCLOVIR HYDROCHLORIDE
     Indication: Prophylaxis
     Dosage: 1000 MILLIGRAM, QD
     Route: 048
  11. RAMIPRIL [Concomitant]
     Active Substance: RAMIPRIL
     Indication: Hypertension
     Dosage: 10 MILLIGRAM
     Route: 048
  12. MAGNE B6 [Concomitant]
     Active Substance: MAGNESIUM\PYRIDOXINE
     Indication: Product used for unknown indication
     Dosage: 1 DF, QD (1 TABLET)
     Route: 048
  13. AMOXICILLIN [Concomitant]
     Active Substance: AMOXICILLIN
     Indication: Prostatitis
     Dosage: FREQUENCY TEXT: NOT PROVIDED
     Route: 048
     Dates: start: 20170712, end: 20170802

REACTIONS (2)
  - Sepsis [Fatal]
  - Febrile bone marrow aplasia [Recovering/Resolving]

NARRATIVE: CASE EVENT DATE: 20170702
